FAERS Safety Report 13486308 (Version 1)
Quarter: 2017Q2

REPORT INFORMATION
  Report Type: Spontaneous
  Country: US (occurrence: US)
  Receive Date: 20170426
  Receipt Date: 20170426
  Transmission Date: 20170830
  Serious: Yes (Death, Other)
  Sender: FDA-Public Use
  Company Number: US-TESARO INC.-TS50-00159-2017USA

PATIENT
  Age: 79 Year
  Sex: Female
  Weight: 59.93 kg

DRUGS (2)
  1. VARUBI [Suspect]
     Active Substance: ROLAPITANT
     Indication: NAUSEA
     Route: 048
     Dates: start: 20170410
  2. VARUBI [Suspect]
     Active Substance: ROLAPITANT
     Indication: VOMITING

REACTIONS (2)
  - Death [Fatal]
  - Gastrointestinal necrosis [Unknown]

NARRATIVE: CASE EVENT DATE: 20170415
